FAERS Safety Report 8915244 (Version 1)
Quarter: 2012Q4

REPORT INFORMATION
  Report Type: 
  Country: US (occurrence: US)
  Receive Date: 20121118
  Receipt Date: 20121118
  Transmission Date: 20130627
  Serious: No
  Sender: FDA-Public Use
  Company Number: US-ASTRAZENECA-2012SE83807

PATIENT
  Age: 68 Year
  Sex: Female
  Weight: 81.6 kg

DRUGS (3)
  1. NEXIUM [Suspect]
     Indication: GASTROOESOPHAGEAL REFLUX DISEASE
     Route: 048
     Dates: start: 2012
  2. LYRICA [Concomitant]
     Indication: FIBROMYALGIA
  3. CYMBALTA [Concomitant]
     Indication: FIBROMYALGIA

REACTIONS (5)
  - Fatigue [Unknown]
  - Mental disorder [Unknown]
  - Asthenia [Unknown]
  - Colitis microscopic [Unknown]
  - Diarrhoea [Unknown]
